FAERS Safety Report 9773738 (Version 2)
Quarter: 2014Q1

REPORT INFORMATION
  Report Type: Spontaneous
  Country: US (occurrence: US)
  Receive Date: 20131219
  Receipt Date: 20140203
  Transmission Date: 20141002
  Serious: No
  Sender: FDA-Public Use
  Company Number: US-GILEAD-2013-0090150

PATIENT
  Sex: Female

DRUGS (3)
  1. LETAIRIS [Suspect]
     Indication: PULMONARY ARTERIAL HYPERTENSION
     Dosage: 5 MG, QD
     Route: 048
     Dates: start: 20131007
  2. TYVASO [Concomitant]
  3. REVATIO [Concomitant]

REACTIONS (3)
  - Middle insomnia [Unknown]
  - Anxiety [Unknown]
  - Agitation [Unknown]
